FAERS Safety Report 9314256 (Version 3)
Quarter: 2013Q3

REPORT INFORMATION
  Report Type: Spontaneous
  Country: GB (occurrence: GB)
  Receive Date: 20130529
  Receipt Date: 20130728
  Transmission Date: 20140515
  Serious: Yes (Hospitalization, Other)
  Sender: FDA-Public Use
  Company Number: PHFR2013GB003001

PATIENT
  Age: 35 Year
  Sex: Female

DRUGS (3)
  1. CLOZARIL [Suspect]
     Indication: SCHIZOPHRENIA
     Dosage: UNK
     Route: 048
     Dates: start: 20100506
  2. CLOZARIL [Suspect]
     Dosage: 350 MG, UNK
     Route: 048
  3. CITALOPRAM [Concomitant]
     Indication: MAJOR DEPRESSION
     Dosage: 30 MG, UNK
     Route: 048
     Dates: start: 201304

REACTIONS (3)
  - Multiple sclerosis [Recovering/Resolving]
  - Optic neuritis [Recovering/Resolving]
  - Nervous system disorder [Unknown]
